FAERS Safety Report 11429496 (Version 3)
Quarter: 2016Q1

REPORT INFORMATION
  Report Type: Spontaneous
  Country: AU (occurrence: AU)
  Receive Date: 20150828
  Receipt Date: 20160302
  Transmission Date: 20160525
  Serious: Yes (Hospitalization, Other)
  Sender: FDA-Public Use
  Company Number: AU-JNJFOC-20150820921

PATIENT
  Age: 80 Year
  Sex: Female

DRUGS (2)
  1. BETAFERON [Suspect]
     Active Substance: INTERFERON BETA-1B
     Indication: MULTIPLE SCLEROSIS
     Route: 058
     Dates: start: 19990101
  2. XARELTO [Suspect]
     Active Substance: RIVAROXABAN
     Indication: ATRIAL FIBRILLATION
     Route: 048
     Dates: start: 20150714

REACTIONS (10)
  - Atrial fibrillation [Recovering/Resolving]
  - Hiatus hernia [Recovering/Resolving]
  - Gastrointestinal angiodysplasia [Unknown]
  - Weight decreased [Unknown]
  - Cardiomyopathy [Recovering/Resolving]
  - Hypertension [Unknown]
  - Asthenia [Recovering/Resolving]
  - Haematemesis [Recovering/Resolving]
  - Injection site pain [Unknown]
  - Cardiac failure congestive [Recovering/Resolving]

NARRATIVE: CASE EVENT DATE: 2003
